FAERS Safety Report 4981606-8 (Version None)
Quarter: 2006Q2

REPORT INFORMATION
  Report Type: 
  Country: None (occurrence: None)
  Receive Date: 20060420
  Receipt Date: 20060420
  Transmission Date: 20061013
  Serious: Yes (Hospitalization)
  Sender: FDA-Public Use
  Company Number: None

PATIENT
  Age: 82 Year
  Weight: 94 kg

DRUGS (10)
  1. COUMADIN [Suspect]
     Indication: ATRIAL FIBRILLATION
     Dosage: 3 QD CHRONIC
  2. NAPROXEN [Suspect]
     Indication: GOUT
     Dosage: 500 BID CHRONIC
  3. NAPROXEN [Suspect]
     Indication: PAIN
     Dosage: 500 BID CHRONIC
  4. HYDROCHLOROTHIAZIDE [Concomitant]
  5. COLCHICINE [Concomitant]
  6. ALLOPURINOL [Concomitant]
  7. CITALOPRAM [Concomitant]
  8. METOPROLOL SUCCINATE [Concomitant]
  9. ASPIRIN [Concomitant]
  10. LOVASTATIN [Concomitant]

REACTIONS (4)
  - CYSTITIS [None]
  - DIZZINESS [None]
  - HAEMATURIA [None]
  - ILL-DEFINED DISORDER [None]
